FAERS Safety Report 11908850 (Version 2)
Quarter: 2016Q1

REPORT INFORMATION
  Report Type: Spontaneous
  Country: US (occurrence: US)
  Receive Date: 20160111
  Receipt Date: 20160128
  Transmission Date: 20160526
  Serious: Yes (Other)
  Sender: FDA-Public Use
  Company Number: US-MEDTRONIC-1046365

PATIENT
  Age: 50 Year
  Sex: Male

DRUGS (2)
  1. BACLOFEN. [Suspect]
     Active Substance: BACLOFEN
     Route: 048
  2. BACLOFEN UNKNOWN ^3000 MCG^ [Suspect]
     Active Substance: BACLOFEN
     Indication: MUSCLE SPASTICITY
     Route: 037

REACTIONS (5)
  - Mass [None]
  - No therapeutic response [None]
  - Sensory disturbance [None]
  - Incorrect route of drug administration [None]
  - Muscle spasms [Unknown]

NARRATIVE: CASE EVENT DATE: 20140123
